FAERS Safety Report 9246673 (Version 3)
Quarter: 2015Q2

REPORT INFORMATION
  Report Type: Report from Study
  Country: US (occurrence: US)
  Receive Date: 20130422
  Receipt Date: 20150609
  Transmission Date: 20150821
  Serious: Yes (Other)
  Sender: FDA-Public Use
  Company Number: US-UCBSA-070748

PATIENT
  Age: 10 Month
  Sex: Male
  Weight: 2.5 kg

DRUGS (7)
  1. PRENATAL VITAMIN W/DHA [Concomitant]
     Indication: PREGNANCY
     Dosage: 1 TAB
     Route: 048
     Dates: start: 20110809
  2. LEVETIRACETAM. [Suspect]
     Active Substance: LEVETIRACETAM
     Dosage: DAILY DOSE: 1500 MG
     Route: 064
  3. FOLIC ACID. [Concomitant]
     Active Substance: FOLIC ACID
     Indication: PREGNANCY
     Dosage: 100 MG, ONCE DAILY (QD)
     Route: 048
  4. LEVETIRACETAM. [Suspect]
     Active Substance: LEVETIRACETAM
     Indication: EPILEPSY
     Dosage: DAILY DOSE: 1500 MG
     Route: 063
  5. VITAMIN D3 [Concomitant]
     Active Substance: CHOLECALCIFEROL
     Indication: VITAMIN D DEFICIENCY
     Dosage: 1000 DF, ONCE DAILY (QD)
     Route: 048
  6. SYNTHROID [Concomitant]
     Active Substance: LEVOTHYROXINE SODIUM
     Indication: HYPOTHYROIDISM
     Dosage: 80 ?G, ONCE DAILY (QD)
     Route: 048
  7. LOVENOX [Concomitant]
     Active Substance: ENOXAPARIN SODIUM
     Indication: COAGULOPATHY
     Dosage: 60 MG, ONCE DAILY (QD)
     Route: 058
     Dates: start: 20110809

REACTIONS (7)
  - Gross motor delay [Unknown]
  - Exposure during breast feeding [Recovered/Resolved]
  - Failure to thrive [Unknown]
  - Developmental delay [Unknown]
  - Gastrooesophageal reflux disease [Unknown]
  - Feeding disorder [Unknown]
  - Foetal exposure during pregnancy [Recovered/Resolved]

NARRATIVE: CASE EVENT DATE: 20130207
